FAERS Safety Report 25128050 (Version 1)
Quarter: 2025Q1

REPORT INFORMATION
  Report Type: Report from Study
  Country: CA (occurrence: CA)
  Receive Date: 20250327
  Receipt Date: 20250327
  Transmission Date: 20250408
  Serious: Yes (Hospitalization)
  Sender: SAMSUNG BIOEPIS
  Company Number: CA-SAMSUNG BIOEPIS-SB-2025-10720

PATIENT
  Age: 78 Year
  Sex: Male

DRUGS (1)
  1. RENFLEXIS [Suspect]
     Active Substance: INFLIXIMAB-ABDA
     Indication: Colitis ulcerative

REACTIONS (5)
  - Vomiting [Recovered/Resolved]
  - Diarrhoea [Unknown]
  - Hypotension [Recovering/Resolving]
  - Malaise [Unknown]
  - Off label use [Unknown]
